FAERS Safety Report 9056448 (Version 1)
Quarter: 2013Q1

REPORT INFORMATION
  Report Type: Spontaneous
  Country: IE (occurrence: IE)
  Receive Date: 20130204
  Receipt Date: 20130204
  Transmission Date: 20140127
  Serious: Yes (Other)
  Sender: FDA-Public Use
  Company Number: IE-GALDERMA-IE13000247

PATIENT
  Age: 40 Year
  Sex: Male
  Weight: 70 kg

DRUGS (3)
  1. EFRACEA [Suspect]
     Indication: ROSACEA
     Route: 048
     Dates: start: 20120515, end: 20130103
  2. RAMIPRIL [Concomitant]
     Indication: HYPERTENSION
     Dates: start: 20091231, end: 20130107
  3. LEVOTHYROXINE SODIUM [Concomitant]
     Indication: HYPOTHYROIDISM
     Dates: start: 20021103, end: 20130107

REACTIONS (2)
  - Angioedema [Not Recovered/Not Resolved]
  - Urticaria [Not Recovered/Not Resolved]
